FAERS Safety Report 7604053-9 (Version None)
Quarter: 2011Q3

REPORT INFORMATION
  Report Type: 
  Country: None (occurrence: None)
  Receive Date: 20110712
  Receipt Date: 20110627
  Transmission Date: 20111222
  Serious: Yes (Other)
  Sender: FDA-Public Use
  Company Number: KP-WATSON-2011-09967

PATIENT
  Age: 76 Year
  Sex: Male

DRUGS (3)
  1. FLUOROURACIL [Suspect]
     Indication: COLON CANCER
     Route: 065
  2. LEUCOVORIN CALCIUM [Suspect]
     Indication: COLON CANCER
     Route: 065
  3. OXALIPLATIN [Suspect]
     Indication: COLON CANCER
     Dosage: UNK
     Route: 065

REACTIONS (3)
  - ASTHENIA [None]
  - DECREASED APPETITE [None]
  - INTERSTITIAL LUNG DISEASE [None]
